FAERS Safety Report 14602829 (Version 1)
Quarter: 2018Q1

REPORT INFORMATION
  Report Type: Report from Study
  Country: CO (occurrence: CO)
  Receive Date: 20180306
  Receipt Date: 20180306
  Transmission Date: 20180509
  Serious: Yes (Hospitalization, Other)
  Sender: FDA-Public Use
  Company Number: PHHY2018CO021382

PATIENT
  Sex: Female
  Weight: 112 kg

DRUGS (4)
  1. SANDOSTATIN LAR DEPOT [Suspect]
     Active Substance: OCTREOTIDE ACETATE
     Indication: ACROMEGALY
     Dosage: 30 MG, UNK
     Route: 030
     Dates: start: 20161003, end: 20171228
  2. ACETAMINOPHEN. [Concomitant]
     Active Substance: ACETAMINOPHEN
     Indication: PRODUCT USED FOR UNKNOWN INDICATION
     Dosage: 1 DF, (EVERY 6 HOURS)
     Route: 048
  3. ACETAZOLAMIDE. [Concomitant]
     Active Substance: ACETAZOLAMIDE
     Indication: PRODUCT USED FOR UNKNOWN INDICATION
     Dosage: 1 DF, (EVERY 12 HOURS)
     Route: 065
  4. PREDNISOLONE. [Concomitant]
     Active Substance: PREDNISOLONE
     Indication: PRODUCT USED FOR UNKNOWN INDICATION
     Dosage: 4 DF, QD (EVERY 24 HOURS)
     Route: 065

REACTIONS (7)
  - Vomiting [Unknown]
  - Visual impairment [Unknown]
  - Urinary tract infection [Recovered/Resolved]
  - Neoplasm progression [Unknown]
  - Pyrexia [Unknown]
  - Headache [Unknown]
  - Pituitary tumour [Unknown]

NARRATIVE: CASE EVENT DATE: 2017
